FAERS Safety Report 7069694-9 (Version None)
Quarter: 2010Q4

REPORT INFORMATION
  Report Type: 
  Country: None (occurrence: None)
  Receive Date: 20101028
  Receipt Date: 20100514
  Transmission Date: 20110411
  Serious: No
  Sender: FDA-Public Use
  Company Number: US-WYE-H15175310

PATIENT
  Sex: Male
  Weight: 92.16 kg

DRUGS (4)
  1. PROTONIX [Suspect]
     Indication: GASTROOESOPHAGEAL REFLUX DISEASE
     Dosage: UNKNOWN ^LIQUID^ DOSE
     Dates: start: 20100301
  2. ONDANSETRON [Concomitant]
     Dosage: UNKNOWN
  3. OMEPRAZOLE [Suspect]
  4. SPIRONOLACTONE [Concomitant]
     Dosage: UNKNOWN

REACTIONS (1)
  - DRUG SCREEN FALSE POSITIVE [None]
